FAERS Safety Report 9394047 (Version 1)
Quarter: 2013Q3

REPORT INFORMATION
  Report Type: Spontaneous
  Country: US (occurrence: US)
  Receive Date: 20130710
  Receipt Date: 20130710
  Transmission Date: 20140515
  Serious: Yes (Hospitalization, Other)
  Sender: FDA-Public Use
  Company Number: US-ELI_LILLY_AND_COMPANY-US201304003375

PATIENT
  Age: 55 Year
  Sex: Female
  Weight: 62.13 kg

DRUGS (1)
  1. HUMALOG LISPRO [Suspect]
     Indication: DIABETES MELLITUS
     Dosage: UNK, UNKNOWN
     Route: 058

REACTIONS (4)
  - Blood glucose fluctuation [Unknown]
  - Hypoglycaemic unconsciousness [Recovered/Resolved]
  - Pneumonia [Unknown]
  - Blood glucose decreased [Unknown]
